FAERS Safety Report 9720215 (Version 1)
Quarter: 2013Q4

REPORT INFORMATION
  Report Type: Spontaneous
  Country: US (occurrence: US)
  Receive Date: 20131129
  Receipt Date: 20131129
  Transmission Date: 20140711
  Serious: No
  Sender: FDA-Public Use
  Company Number: US-B.I. PHARMACEUTICALS,INC./RIDGEFIELD-2013-BI-38298BP

PATIENT
  Sex: Female

DRUGS (2)
  1. CATAPRES [Suspect]
  2. LOSARTAN POTASSIUM [Suspect]

REACTIONS (3)
  - Dizziness [Unknown]
  - Migraine [Unknown]
  - Dysphonia [Unknown]
